FAERS Safety Report 5546012-6 (Version None)
Quarter: 2007Q4

REPORT INFORMATION
  Report Type: 
  Country: None (occurrence: None)
  Receive Date: 20071211
  Receipt Date: 20070824
  Transmission Date: 20080405
  Serious: Yes (Other)
  Sender: FDA-Public Use
  Company Number: US-BRISTOL-MYERS SQUIBB COMPANY-13516489

PATIENT
  Age: 73 Year
  Sex: Male

DRUGS (19)
  1. EMSAM [Suspect]
     Indication: DEPRESSION
     Route: 062
  2. NORVASC [Concomitant]
  3. LIPITOR [Concomitant]
  4. ZETIA [Concomitant]
  5. ALTACE [Concomitant]
  6. HYDROCHLOROTHIAZIDE [Concomitant]
  7. KLONOPIN [Concomitant]
  8. NEXIUM [Concomitant]
  9. TRAZODONE HCL [Concomitant]
  10. NITROQUICK [Concomitant]
  11. ASPIRIN [Concomitant]
  12. FLONASE [Concomitant]
  13. SPIRIVA [Concomitant]
  14. TYLENOL [Concomitant]
  15. ROBAXIN [Concomitant]
  16. DARVOCET-N 100 [Concomitant]
  17. MUCINEX [Concomitant]
  18. ASTELIN [Concomitant]
  19. MOMETASONE FUROATE [Concomitant]
     Route: 061

REACTIONS (2)
  - BLOOD PRESSURE INCREASED [None]
  - PALPITATIONS [None]
